FAERS Safety Report 18539246 (Version 1)
Quarter: 2020Q4

REPORT INFORMATION
  Report Type: Other
  Country: RO (occurrence: RO)
  Receive Date: 20201124
  Receipt Date: 20201124
  Transmission Date: 20210114
  Serious: Yes (Hospitalization)
  Sender: FDA-Public Use
  Company Number: RO-ROCHE-2717889

PATIENT
  Age: 30 Year
  Sex: Male

DRUGS (16)
  1. CLOZAPINE. [Suspect]
     Active Substance: CLOZAPINE
     Indication: BIPOLAR DISORDER
     Route: 065
  2. OLANZAPINE. [Suspect]
     Active Substance: OLANZAPINE
     Route: 065
  3. AMISULPRIDE [Suspect]
     Active Substance: AMISULPRIDE
     Route: 065
  4. CLOZAPINE. [Suspect]
     Active Substance: CLOZAPINE
     Route: 065
  5. CLOZAPINE. [Suspect]
     Active Substance: CLOZAPINE
     Route: 065
  6. OLANZAPINE. [Suspect]
     Active Substance: OLANZAPINE
     Indication: BIPOLAR DISORDER
     Route: 065
  7. CLONAZEPAM. [Suspect]
     Active Substance: CLONAZEPAM
     Route: 065
  8. CLOZAPINE. [Suspect]
     Active Substance: CLOZAPINE
     Route: 065
  9. CLOZAPINE. [Suspect]
     Active Substance: CLOZAPINE
     Route: 065
  10. AMISULPRIDE [Suspect]
     Active Substance: AMISULPRIDE
     Route: 065
  11. LEVOMEPROMAZINE [Suspect]
     Active Substance: LEVOMEPROMAZINE
     Indication: BIPOLAR DISORDER
     Route: 065
  12. CLONAZEPAM. [Suspect]
     Active Substance: CLONAZEPAM
     Route: 065
  13. AMISULPRIDE [Suspect]
     Active Substance: AMISULPRIDE
     Indication: BIPOLAR DISORDER
     Route: 065
  14. AMISULPRIDE [Suspect]
     Active Substance: AMISULPRIDE
     Route: 065
  15. SODIUM VALPROATE [Suspect]
     Active Substance: VALPROATE SODIUM
     Indication: BIPOLAR DISORDER
     Route: 065
  16. CLONAZEPAM. [Suspect]
     Active Substance: CLONAZEPAM
     Indication: BIPOLAR DISORDER
     Route: 065

REACTIONS (2)
  - Blood creatine phosphokinase increased [Recovered/Resolved]
  - Neuroleptic malignant syndrome [Recovered/Resolved]
